FAERS Safety Report 5908425-X (Version None)
Quarter: 2008Q4

REPORT INFORMATION
  Report Type: 
  Country: None (occurrence: None)
  Receive Date: 20081006
  Receipt Date: 20080926
  Transmission Date: 20090506
  Serious: Yes (Other)
  Sender: FDA-Public Use
  Company Number: US-ROCHE-552226

PATIENT
  Sex: Male
  Weight: 88.5 kg

DRUGS (11)
  1. ACCUTANE [Suspect]
     Dosage: 40 MG QAM, 80 MG QPM
     Route: 048
     Dates: start: 19980917, end: 19981221
  2. ACCUTANE [Suspect]
     Route: 048
     Dates: start: 19981221, end: 19990126
  3. ACCUTANE [Suspect]
     Route: 048
     Dates: start: 19990126, end: 19990426
  4. ACCUTANE [Suspect]
     Route: 048
     Dates: start: 19990426, end: 19990604
  5. HISMANAL [Concomitant]
  6. VANCENASE [Concomitant]
  7. PANMIST S [Concomitant]
     Dosage: DRUG: PANMIST
  8. SINGULAIR [Concomitant]
  9. NASONEX [Concomitant]
  10. ALLEGRA [Concomitant]
  11. MINOCYCLINE HCL [Concomitant]
     Indication: ACNE

REACTIONS (10)
  - ACNE [None]
  - ANXIETY [None]
  - CHEILITIS [None]
  - COLITIS ULCERATIVE [None]
  - DEPRESSION [None]
  - ECZEMA [None]
  - EPISTAXIS [None]
  - INFLAMMATORY BOWEL DISEASE [None]
  - IRRITABLE BOWEL SYNDROME [None]
  - VENTRICULAR EXTRASYSTOLES [None]
